FAERS Safety Report 6869576-9 (Version None)
Quarter: 2010Q3

REPORT INFORMATION
  Report Type: 
  Country: None (occurrence: None)
  Receive Date: 20100721
  Receipt Date: 20100706
  Transmission Date: 20110219
  Serious: Yes (Other)
  Sender: FDA-Public Use
  Company Number: 1000015129

PATIENT
  Age: 35 Year
  Sex: Female

DRUGS (1)
  1. ESCITALOPRAM [Suspect]
     Indication: PANIC DISORDER
     Dates: start: 20100531, end: 20100618

REACTIONS (5)
  - ABDOMINAL PAIN UPPER [None]
  - DIZZINESS [None]
  - FEELING ABNORMAL [None]
  - VAGINAL HAEMORRHAGE [None]
  - VISION BLURRED [None]
